FAERS Safety Report 10640323 (Version 5)
Quarter: 2015Q1

REPORT INFORMATION
  Report Type: Report from Study
  Country: NZ (occurrence: NZ)
  Receive Date: 20141209
  Receipt Date: 20150316
  Transmission Date: 20150720
  Serious: Yes (Other)
  Sender: FDA-Public Use
  Company Number: NZ-ABBVIE-14K-118-1299239-00

PATIENT
  Age: 78 Year
  Sex: Female

DRUGS (3)
  1. HYDROCORTISONE. [Concomitant]
     Active Substance: HYDROCORTISONE
     Indication: PRODUCT USED FOR UNKNOWN INDICATION
     Dates: start: 201502
  2. HUMIRA [Suspect]
     Active Substance: ADALIMUMAB
     Route: 065
     Dates: start: 20150223, end: 20150307
  3. HUMIRA [Suspect]
     Active Substance: ADALIMUMAB
     Indication: RHEUMATOID ARTHRITIS
     Route: 065
     Dates: end: 201502

REACTIONS (21)
  - Pain in extremity [Unknown]
  - Faeces discoloured [Unknown]
  - Cataract [Unknown]
  - Constipation [Unknown]
  - Fatigue [Unknown]
  - Cough [Unknown]
  - Dysgeusia [Unknown]
  - Incorrect dose administered [Unknown]
  - Corneal disorder [Unknown]
  - Dysuria [Unknown]
  - Hypoaesthesia [Unknown]
  - Urinary tract infection [Recovered/Resolved]
  - Pain [Unknown]
  - Pollakiuria [Unknown]
  - Weight decreased [Unknown]
  - Arthralgia [Unknown]
  - Sjogren^s syndrome [Unknown]
  - Burning sensation [Unknown]
  - Device issue [Unknown]
  - Dysentery [Unknown]
  - Anxiety [Unknown]

NARRATIVE: CASE EVENT DATE: 201410
